FAERS Safety Report 5705792-7 (Version None)
Quarter: 2008Q2

REPORT INFORMATION
  Report Type: 
  Country: None (occurrence: None)
  Receive Date: 20080411
  Receipt Date: 20080331
  Transmission Date: 20081010
  Serious: Yes (Hospitalization)
  Sender: FDA-Public Use
  Company Number: 2008-02224

PATIENT
  Age: 78 Year
  Sex: Female

DRUGS (1)
  1. FERRLECIT (WATSON LABORATORIES)(SODODIUM FERRIC GLUCONATE) INJECTION, [Suspect]
     Indication: IRON DEFICIENCY ANAEMIA
     Dosage: 125 MG (DILUTED) OVER 1 HR, INTRAVENOUS
     Route: 042
     Dates: start: 20080320

REACTIONS (2)
  - HUNGER [None]
  - SYNCOPE [None]
